FAERS Safety Report 8597736-8 (Version None)
Quarter: 2012Q3

REPORT INFORMATION
  Report Type: 
  Country: None (occurrence: None)
  Receive Date: 20120816
  Receipt Date: 20120810
  Transmission Date: 20120928
  Serious: Yes (Hospitalization, Other)
  Sender: FDA-Public Use
  Company Number: PHHY2012BR049992

PATIENT
  Sex: Female

DRUGS (3)
  1. ENALAPRIL MALEATE [Concomitant]
     Indication: BLOOD PRESSURE ABNORMAL
  2. EXELON [Suspect]
     Indication: DEMENTIA ALZHEIMER'S TYPE
     Dosage: 4.6 MG, DAILY
     Route: 062
     Dates: start: 20110801
  3. CAPTOPRIL [Concomitant]
     Indication: BLOOD PRESSURE ABNORMAL
     Dosage: 1 DF, DAILY
     Route: 048

REACTIONS (4)
  - THROMBOSIS [None]
  - PLEURAL EFFUSION [None]
  - PANCREATITIS ACUTE [None]
  - DIVERTICULITIS [None]
